FAERS Safety Report 11246893 (Version 1)
Quarter: 2015Q3

REPORT INFORMATION
  Report Type: Spontaneous
  Country: US (occurrence: None)
  Receive Date: 20150706
  Receipt Date: 20150706
  Transmission Date: 20151125
  Serious: No
  Sender: FDA-Public Use
  Company Number: None

PATIENT
  Age: 46 Year
  Sex: Male
  Weight: 126.55 kg

DRUGS (1)
  1. CONTRAVE [Suspect]
     Active Substance: BUPROPION HYDROCHLORIDE\NALTREXONE HYDROCHLORIDE
     Indication: WEIGHT LOSS DIET
     Dosage: TAKEN BY MOUTH
     Dates: start: 20150609, end: 20150629

REACTIONS (2)
  - Mood altered [None]
  - Anger [None]

NARRATIVE: CASE EVENT DATE: 20150629
